FAERS Safety Report 4736516-8 (Version None)
Quarter: 2005Q3

REPORT INFORMATION
  Report Type: 
  Country: None (occurrence: None)
  Receive Date: 20050804
  Receipt Date: 20050804
  Transmission Date: 20060218
  Serious: Yes (Other)
  Sender: FDA-Public Use
  Company Number: None

PATIENT
  Age: 80 Year
  Sex: Female
  Weight: 48.9885 kg

DRUGS (16)
  1. ENTOCORT EC [Suspect]
     Indication: COELIAC DISEASE
     Dosage: 3 MG WITH EACH MEAL
     Dates: start: 20010101
  2. STARLIX [Concomitant]
  3. CREON [Concomitant]
  4. KCL XR [Concomitant]
  5. TOPROL-XL [Concomitant]
  6. DIGOXIN [Concomitant]
  7. DESYREL [Concomitant]
  8. ATIVAN [Concomitant]
  9. NEXIUMN [Concomitant]
  10. NORVASC [Concomitant]
  11. VITAMIN E [Concomitant]
  12. CITRUS BIOFLAVONOLOS COMPLEX [Concomitant]
  13. CALICUM [Concomitant]
  14. TYLENOL [Concomitant]
  15. IMODIUM [Concomitant]
  16. LOMOTIL [Concomitant]

REACTIONS (13)
  - ABDOMINAL PAIN UPPER [None]
  - ADRENOCORTICAL INSUFFICIENCY CHRONIC [None]
  - BLOOD CHOLESTEROL INCREASED [None]
  - CELLULITIS [None]
  - CONFUSIONAL STATE [None]
  - DEPRESSION [None]
  - DIABETES MELLITUS [None]
  - DRUG LEVEL DECREASED [None]
  - FATIGUE [None]
  - HEADACHE [None]
  - MALAISE [None]
  - MYALGIA [None]
  - SKIN DISCOLOURATION [None]
